FAERS Safety Report 12376646 (Version 1)
Quarter: 2016Q2

REPORT INFORMATION
  Report Type: Spontaneous
  Country: US (occurrence: US)
  Receive Date: 20160517
  Receipt Date: 20160517
  Transmission Date: 20160815
  Serious: No
  Sender: FDA-Public Use
  Company Number: US-RELYPSA-RLY2016000137

PATIENT

DRUGS (3)
  1. VELTASSA [Suspect]
     Active Substance: PATIROMER
     Dosage: 25.2 G, QD
     Route: 048
     Dates: start: 20160219
  2. VELTASSA [Suspect]
     Active Substance: PATIROMER
     Indication: HYPERKALAEMIA
     Dosage: 16.8 G, QD
     Route: 048
     Dates: start: 20160203, end: 20160218
  3. LACTULOSE. [Concomitant]
     Active Substance: LACTULOSE
     Dosage: 45 ML, UNK

REACTIONS (1)
  - Blood potassium increased [Unknown]

NARRATIVE: CASE EVENT DATE: 201602
